FAERS Safety Report 10305721 (Version 1)
Quarter: 2014Q3

REPORT INFORMATION
  Report Type: Spontaneous
  Country: US (occurrence: None)
  Receive Date: 20140714
  Receipt Date: 20140714
  Transmission Date: 20150326
  Serious: Yes (Disabling)
  Sender: FDA-Public Use
  Company Number: None

PATIENT
  Age: 48 Year
  Sex: Male
  Weight: 45.6 kg

DRUGS (4)
  1. NELARABINE [Suspect]
     Active Substance: NELARABINE
     Indication: LEUKAEMIA RECURRENT
     Dosage: Q48H X 3 DOSES
     Route: 042
     Dates: start: 20130821, end: 20130825
  2. NELARABINE [Suspect]
     Active Substance: NELARABINE
     Indication: T-CELL TYPE ACUTE LEUKAEMIA
     Dosage: Q48H X 3 DOSES
     Route: 042
     Dates: start: 20130821, end: 20130825
  3. NELARABINE [Suspect]
     Active Substance: NELARABINE
     Indication: POST PROCEDURAL COMPLICATION
     Dosage: Q48H X 3 DOSES
     Route: 042
     Dates: start: 20130821, end: 20130825
  4. METHOTREXATE [Concomitant]
     Active Substance: METHOTREXATE

REACTIONS (5)
  - Arachnoiditis [None]
  - Sensory disturbance [None]
  - Spinal cord disorder [None]
  - Paraplegia [None]
  - Cauda equina syndrome [None]

NARRATIVE: CASE EVENT DATE: 20130926
